FAERS Safety Report 8226059-1 (Version None)
Quarter: 2012Q1

REPORT INFORMATION
  Report Type: 
  Country: None (occurrence: None)
  Receive Date: 20120319
  Receipt Date: 20120229
  Transmission Date: 20120608
  Serious: Yes (Hospitalization)
  Sender: FDA-Public Use
  Company Number: 024688

PATIENT
  Age: 67 Year
  Sex: Male

DRUGS (4)
  1. ROEKAN (GINKGO BILOBA EXTRACT) [Concomitant]
  2. GABAPENTIN [Concomitant]
  3. MACUGEN [Suspect]
     Indication: AGE-RELATED MACULAR DEGENERATION
     Dosage: 0.3MG, MONTHLY, INTRAOCULAR
     Route: 031
     Dates: start: 20080211, end: 20080319
  4. OPIPRAMOL HYDROCHLORIDE (OPIPRAMOL HYDROCHLORIDE) [Concomitant]

REACTIONS (1)
  - EPIDIDYMITIS [None]
